FAERS Safety Report 11837577 (Version 1)
Quarter: 2015Q4

REPORT INFORMATION
  Report Type: Spontaneous
  Country: US (occurrence: US)
  Receive Date: 20151215
  Receipt Date: 20151215
  Transmission Date: 20160305
  Serious: No
  Sender: FDA-Public Use
  Company Number: US-SHIRE-US-002530

PATIENT
  Sex: Female

DRUGS (1)
  1. GATTEX [Suspect]
     Active Substance: TEDUGLUTIDE\WATER
     Indication: SHORT-BOWEL SYNDROME
     Dosage: 0.44 ML, 1X/DAY:QD
     Route: 058
     Dates: start: 201501

REACTIONS (1)
  - Product reconstitution issue [Unknown]

NARRATIVE: CASE EVENT DATE: 2015
